APPROVED DRUG PRODUCT: CLARITHROMYCIN
Active Ingredient: CLARITHROMYCIN
Strength: 500MG
Dosage Form/Route: TABLET, EXTENDED RELEASE;ORAL
Application: A203243 | Product #001 | TE Code: AB
Applicant: MPP PHARMA LLC
Approved: Feb 29, 2016 | RLD: No | RS: No | Type: RX